FAERS Safety Report 16243103 (Version 1)
Quarter: 2019Q2

REPORT INFORMATION
  Report Type: Spontaneous
  Country: AR (occurrence: AR)
  Receive Date: 20190426
  Receipt Date: 20190426
  Transmission Date: 20190711
  Serious: Yes (Other)
  Sender: FDA-Public Use
  Company Number: AR-PFIZER INC-2019176888

PATIENT
  Age: 63 Year
  Sex: Female

DRUGS (2)
  1. LYRICA [Suspect]
     Active Substance: PREGABALIN
     Indication: PAIN
     Dosage: UNK
     Dates: start: 20131014
  2. TRAMADOL. [Concomitant]
     Active Substance: TRAMADOL
     Indication: PAIN
     Dosage: UNK

REACTIONS (5)
  - Haemorrhage [Unknown]
  - Fall [Unknown]
  - Subclavian vein occlusion [Unknown]
  - Intentional product misuse [Unknown]
  - Muscular weakness [Unknown]

NARRATIVE: CASE EVENT DATE: 2014
